FAERS Safety Report 13045555 (Version 2)
Quarter: 2016Q4

REPORT INFORMATION
  Report Type: Spontaneous
  Country: FR (occurrence: FR)
  Receive Date: 20161220
  Receipt Date: 20161227
  Transmission Date: 20170207
  Serious: Yes (Other)
  Sender: FDA-Public Use
  Company Number: PHHY2016FR173811

PATIENT
  Age: 18 Year
  Sex: Female
  Weight: 50 kg

DRUGS (1)
  1. GILENYA [Suspect]
     Active Substance: FINGOLIMOD HYDROCHLORIDE
     Indication: RELAPSING-REMITTING MULTIPLE SCLEROSIS
     Dosage: 0.5 MG, QD
     Route: 048
     Dates: start: 20161114, end: 20161128

REACTIONS (6)
  - Skin lesion [Recovered/Resolved]
  - Eosinophilia [Unknown]
  - Toxic skin eruption [Recovered/Resolved]
  - Type I hypersensitivity [Unknown]
  - Pruritus [Unknown]
  - Papule [Unknown]

NARRATIVE: CASE EVENT DATE: 20161119
